FAERS Safety Report 9766282 (Version 1)
Quarter: 2013Q4

REPORT INFORMATION
  Report Type: Spontaneous
  Country: US (occurrence: US)
  Receive Date: 20131217
  Receipt Date: 20131217
  Transmission Date: 20140711
  Serious: No
  Sender: FDA-Public Use
  Company Number: US-GLAXOSMITHKLINE-A1024551A

PATIENT
  Age: 54 Year
  Sex: Male

DRUGS (2)
  1. VOTRIENT [Suspect]
     Indication: RENAL CELL CARCINOMA
     Dosage: 800MG PER DAY
     Route: 048
     Dates: start: 20121020
  2. NO CONCURRENT MEDICATION [Concomitant]

REACTIONS (9)
  - Diarrhoea [Not Recovered/Not Resolved]
  - Weight decreased [Unknown]
  - Skin depigmentation [Unknown]
  - Hair colour changes [Unknown]
  - Blister [Unknown]
  - Therapeutic response unexpected [Unknown]
  - Lung disorder [Unknown]
  - Constipation [Unknown]
  - Skin exfoliation [Unknown]
